FAERS Safety Report 7537226-4 (Version None)
Quarter: 2011Q2

REPORT INFORMATION
  Report Type: 
  Country: None (occurrence: None)
  Receive Date: 20110603
  Receipt Date: 20110518
  Transmission Date: 20111010
  Serious: Yes (Hospitalization, Other)
  Sender: FDA-Public Use
  Company Number: 2011MA006064

PATIENT
  Age: 39 Year
  Sex: Male

DRUGS (5)
  1. AZATHIOPRINE [Concomitant]
  2. CORTISONE ACETATE [Concomitant]
  3. DICLOFENAC SODIUM [Suspect]
     Indication: ANKYLOSING SPONDYLITIS
  4. PREDNISOLONE [Concomitant]
  5. NSAIDS [Concomitant]

REACTIONS (9)
  - DIARRHOEA HAEMORRHAGIC [None]
  - ISCHAEMIA [None]
  - DRUG INEFFECTIVE [None]
  - COLITIS [None]
  - SKIN STRIAE [None]
  - WEIGHT INCREASED [None]
  - COLONIC STENOSIS [None]
  - ANAEMIA [None]
  - CROHN'S DISEASE [None]
